FAERS Safety Report 16400694 (Version 3)
Quarter: 2019Q3

REPORT INFORMATION
  Report Type: Spontaneous
  Country: JP (occurrence: JP)
  Receive Date: 20190606
  Receipt Date: 20190809
  Transmission Date: 20191004
  Serious: Yes (Death, Life-Threatening, Hospitalization, Other)
  Sender: FDA-Public Use
  Company Number: JP-BRISTOL-MYERS SQUIBB COMPANY-BMS-2019-055084

PATIENT
  Age: 72 Year
  Sex: Male

DRUGS (5)
  1. OPDIVO [Suspect]
     Active Substance: NIVOLUMAB
     Indication: NON-SMALL CELL LUNG CANCER RECURRENT
     Dosage: 240 MG
     Route: 041
     Dates: start: 20161005
  2. PREDONINE [Suspect]
     Active Substance: PREDNISOLONE
     Indication: PLATELET COUNT DECREASED
     Dosage: 50 MILLIGRAM
     Route: 065
     Dates: start: 20190419, end: 20190516
  3. PREDONINE [Suspect]
     Active Substance: PREDNISOLONE
     Indication: PRODUCT USED FOR UNKNOWN INDICATION
     Dosage: 40 MILLIGRAM
     Route: 065
     Dates: start: 20190517, end: 20190523
  4. PREDONINE [Suspect]
     Active Substance: PREDNISOLONE
     Indication: PRODUCT USED FOR UNKNOWN INDICATION
     Dosage: 30 MILLIGRAM
     Route: 065
     Dates: start: 20190524, end: 20190613
  5. PREDONINE [Suspect]
     Active Substance: PREDNISOLONE
     Indication: PRODUCT USED FOR UNKNOWN INDICATION
     Dosage: 20 MILLIGRAM
     Route: 065
     Dates: start: 20190614

REACTIONS (4)
  - Pneumonia staphylococcal [Fatal]
  - Platelet count decreased [Recovering/Resolving]
  - Immune thrombocytopenic purpura [Unknown]
  - Metastasis [Unknown]

NARRATIVE: CASE EVENT DATE: 2019
